FAERS Safety Report 16022383 (Version 4)
Quarter: 2020Q4

REPORT INFORMATION
  Report Type: Report from Study
  Country: BW (occurrence: BW)
  Receive Date: 20190301
  Receipt Date: 20201126
  Transmission Date: 20210113
  Serious: Yes (Death, Congenital Anomaly, Other)
  Sender: FDA-Public Use
  Company Number: BW-AUROBINDO-AUR-APL-2019-009434

PATIENT

DRUGS (4)
  1. LAMIVUDINE. [Suspect]
     Active Substance: LAMIVUDINE
     Indication: PRODUCT USED FOR UNKNOWN INDICATION
     Dosage: UNK (FIRST TRIMESTER)
     Route: 064
  2. TIVICAY [Suspect]
     Active Substance: DOLUTEGRAVIR SODIUM
     Indication: PRODUCT USED FOR UNKNOWN INDICATION
     Dosage: UNK (FIRST TRIMESTER, 22 WEEK ENDED)
     Route: 064
  3. ABACAVIR. [Suspect]
     Active Substance: ABACAVIR
     Indication: PRODUCT USED FOR UNKNOWN INDICATION
     Dosage: UNK (FIRST TRIMESTER)
     Route: 064
  4. EFAVIRENZ. [Suspect]
     Active Substance: EFAVIRENZ
     Indication: PRODUCT USED FOR UNKNOWN INDICATION
     Dosage: UNK (SECOND TRIMESTER, 22 WEEK BEGAN)
     Route: 064

REACTIONS (4)
  - Foetal exposure during pregnancy [Unknown]
  - Hydrocephalus [Unknown]
  - Meningomyelocele [Unknown]
  - Stillbirth [Fatal]
